FAERS Safety Report 25908171 (Version 2)
Quarter: 2025Q4

REPORT INFORMATION
  Report Type: Spontaneous
  Country: JP (occurrence: JP)
  Receive Date: 20251010
  Receipt Date: 20251023
  Transmission Date: 20260117
  Serious: Yes (Other)
  Sender: PFIZER
  Company Number: JP-PFIZER INC-PV202500119118

PATIENT
  Age: 78 Year
  Sex: Female
  Weight: 52 kg

DRUGS (14)
  1. TOVIAZ [Suspect]
     Active Substance: FESOTERODINE FUMARATE
     Indication: Pollakiuria
     Dosage: 4 MG, 1X/DAY
     Route: 048
     Dates: start: 20210821, end: 20240716
  2. BISOPROLOL [Concomitant]
     Active Substance: BISOPROLOL
     Dosage: 1 DF, AFTER BREAKFAST
  3. CALONAL [Concomitant]
     Active Substance: ACETAMINOPHEN
     Dosage: 6 DF, AFTER EACH MEAL
  4. CELECOXIB VIATRIS [Concomitant]
     Dosage: 4 DF, AFTER BREAKFAST AND DINNER
  5. CELECOXIB VIATRIS [Concomitant]
     Dosage: 2 DF, AFTER BREAKFAST AND DINNER
     Dates: start: 20240710
  6. MAGNESIUM OXIDE KENEI [Concomitant]
     Dosage: 2 DF, AFTER BREAKFAST AND DINNER
  7. PREGABALIN OD SAWAI [Concomitant]
     Dosage: 1 DF BEFORE SLEEP
  8. REBAMIPIDE [Concomitant]
     Active Substance: REBAMIPIDE
     Dosage: 2 DF, AFTER BREAKFAST AND DINNER
  9. VONOPRAZAN FUMARATE [Concomitant]
     Active Substance: VONOPRAZAN FUMARATE
     Dosage: 1 DF, AFTER BREAKFAST
  10. MIROGABALIN BESYLATE [Concomitant]
     Active Substance: MIROGABALIN BESYLATE
     Dosage: 2 DF, AFTER BREAKFAST AND DINNER
  11. TRICHLORMETHIAZIDE [Concomitant]
     Active Substance: TRICHLORMETHIAZIDE
     Dosage: 1 DF, AFTER BREAKFAST
  12. VERAPAMIL [Concomitant]
     Active Substance: VERAPAMIL HYDROCHLORIDE
     Dosage: 2 DF, AFTER BREAKFAST AND BEFORE SLEEP
  13. SENNA [Concomitant]
     Active Substance: SENNOSIDES
     Dosage: SUGAR-COATED TABLETS, 2 DF, BEFORE SLEEP
  14. ZILMLO OD SAWAI [Concomitant]
     Dosage: 1 DF, AFTER BREAKFAST

REACTIONS (4)
  - Renal impairment [Recovering/Resolving]
  - Dysuria [Recovering/Resolving]
  - Dehydration [Recovering/Resolving]
  - Blood creatinine increased [Recovering/Resolving]

NARRATIVE: CASE EVENT DATE: 20240716
